FAERS Safety Report 14570903 (Version 1)
Quarter: 2018Q1

REPORT INFORMATION
  Report Type: Report from Study
  Country: None (occurrence: BR)
  Receive Date: 20180226
  Receipt Date: 20180226
  Transmission Date: 20180509
  Serious: Yes (Other)
  Sender: FDA-Public Use
  Company Number: BR-ABBVIE-18K-020-2265847-00

PATIENT
  Age: 72 Year
  Sex: Female
  Weight: 63 kg

DRUGS (2)
  1. HUMIRA [Suspect]
     Active Substance: ADALIMUMAB
     Indication: CROHN^S DISEASE
     Route: 058
     Dates: start: 20171006
  2. HUMIRA [Suspect]
     Active Substance: ADALIMUMAB
     Route: 058

REACTIONS (11)
  - Gastric ulcer [Unknown]
  - Arthralgia [Unknown]
  - Pain in extremity [Unknown]
  - Dysstasia [Unknown]
  - Gastric disorder [Unknown]
  - Varicose vein [Unknown]
  - Tendonitis [Not Recovered/Not Resolved]
  - Vomiting [Unknown]
  - Blood cholesterol increased [Not Recovered/Not Resolved]
  - Pain [Unknown]
  - Diarrhoea [Unknown]

NARRATIVE: CASE EVENT DATE: 201708
